FAERS Safety Report 7532531-X (Version None)
Quarter: 2011Q2

REPORT INFORMATION
  Report Type: 
  Country: None (occurrence: None)
  Receive Date: 20110608
  Receipt Date: 20110526
  Transmission Date: 20111010
  Serious: Yes (Other)
  Sender: FDA-Public Use
  Company Number: PHFR2011GB02256

PATIENT
  Sex: Male

DRUGS (6)
  1. CLOZAPINE [Suspect]
     Indication: SCHIZOPHRENIA
     Dosage: 350 MG, QD
     Route: 048
     Dates: start: 20070301, end: 20090201
  2. CETIRIZINE HCL [Concomitant]
     Dosage: 10 MG
  3. EYE DROPS [Concomitant]
  4. PERINDOPRIL ERBUMINE [Concomitant]
     Dosage: 4 MG
  5. LORAZEPAM [Concomitant]
     Dosage: 3 MG
  6. CLOZAPINE [Suspect]
     Dosage: UNK
     Route: 048

REACTIONS (3)
  - SLEEP APNOEA SYNDROME [None]
  - PNEUMONIA [None]
  - HODGKIN'S DISEASE [None]
